FAERS Safety Report 16663594 (Version 1)
Quarter: 2019Q3

REPORT INFORMATION
  Report Type: Spontaneous
  Country: BE (occurrence: BE)
  Receive Date: 20190802
  Receipt Date: 20190802
  Transmission Date: 20191004
  Serious: Yes (Hospitalization, Disabling)
  Sender: FDA-Public Use
  Company Number: BE-IPSEN-CABO-19018490

PATIENT
  Age: 62 Year
  Sex: Female
  Weight: 60 kg

DRUGS (6)
  1. CABOMETYX [Suspect]
     Active Substance: CABOZANTINIB S-MALATE
     Dosage: 20 MG, QD
     Route: 048
     Dates: start: 20190128, end: 20190221
  2. CONTRAMAL [Concomitant]
     Active Substance: TRAMADOL HYDROCHLORIDE
  3. ALIZAPRIDE [Concomitant]
     Active Substance: ALIZAPRIDE
     Dosage: UNK
     Dates: start: 20190115
  4. PANTOPRAZOLE [Concomitant]
     Active Substance: PANTOPRAZOLE
     Dosage: UNK
     Dates: start: 20181107
  5. IMODIUM [Concomitant]
     Active Substance: LOPERAMIDE HYDROCHLORIDE
  6. CABOMETYX [Suspect]
     Active Substance: CABOZANTINIB S-MALATE
     Indication: RENAL CELL CARCINOMA STAGE IV
     Dosage: 60 MG, QD
     Route: 048
     Dates: start: 20181207, end: 20190107

REACTIONS (6)
  - Abdominal pain upper [Recovered/Resolved]
  - Vomiting [Recovered/Resolved]
  - Decreased appetite [Not Recovered/Not Resolved]
  - Hypothyroidism [Unknown]
  - Nausea [Recovered/Resolved]
  - Weight decreased [Unknown]

NARRATIVE: CASE EVENT DATE: 20190108
